FAERS Safety Report 9338129 (Version 1)
Quarter: 2013Q2

REPORT INFORMATION
  Report Type: Spontaneous
  Country: US (occurrence: None)
  Receive Date: 20130605
  Receipt Date: 20130605
  Transmission Date: 20140414
  Serious: Yes (Hospitalization)
  Sender: FDA-Public Use
  Company Number: None

PATIENT
  Age: 58 Year
  Sex: Female
  Weight: 61.24 kg

DRUGS (1)
  1. LEVOFLOXACIN [Suspect]
     Indication: PNEUMONIA
     Dosage: 1, DAILY, PO
     Route: 048
     Dates: start: 20130421, end: 20130425

REACTIONS (4)
  - Arthralgia [None]
  - Synovitis [None]
  - Tendon disorder [None]
  - Synovial cyst [None]
